FAERS Safety Report 15755201 (Version 1)
Quarter: 2018Q4

REPORT INFORMATION
  Report Type: Spontaneous
  Country: PT (occurrence: PT)
  Receive Date: 20181224
  Receipt Date: 20181224
  Transmission Date: 20190205
  Serious: Yes (Life-Threatening, Hospitalization, Other)
  Sender: FDA-Public Use
  Company Number: PT-AUROBINDO-AUR-APL-2018-053426

PATIENT
  Age: 69 Year
  Sex: Male

DRUGS (6)
  1. QUETIAPINE PROLONGED-RELEASE TABLET [Suspect]
     Active Substance: QUETIAPINE
     Dosage: UNK
     Route: 048
  2. HALOPERIDOL. [Suspect]
     Active Substance: HALOPERIDOL
     Indication: AGITATION
     Dosage: 4 MILLIGRAM, ONCE A DAY
     Route: 048
  3. OXAZEPAM. [Concomitant]
     Active Substance: OXAZEPAM
     Indication: SEDATION
  4. HALOPERIDOL. [Suspect]
     Active Substance: HALOPERIDOL
     Indication: PSYCHOMOTOR HYPERACTIVITY
     Dosage: 54 MILLIGRAM, (8 HOURS)
     Route: 065
  5. QUETIAPINE PROLONGED-RELEASE TABLET [Suspect]
     Active Substance: QUETIAPINE
     Indication: PSYCHOMOTOR HYPERACTIVITY
     Dosage: 100 MILLIGRAM, DAILY
     Route: 065
  6. OXAZEPAM. [Concomitant]
     Active Substance: OXAZEPAM
     Indication: PSYCHOMOTOR HYPERACTIVITY
     Dosage: 50 MILLIGRAM, UNK
     Route: 065

REACTIONS (6)
  - Pyrexia [Recovered/Resolved]
  - Agitation [Unknown]
  - Neuroleptic malignant syndrome [Recovering/Resolving]
  - Cardio-respiratory arrest [Recovered/Resolved]
  - Fatigue [Unknown]
  - Cardiac arrest [Recovered/Resolved]
